FAERS Safety Report 10231339 (Version 1)
Quarter: 2014Q2

REPORT INFORMATION
  Report Type: Spontaneous
  Country: US (occurrence: US)
  Receive Date: 20140611
  Receipt Date: 20140611
  Transmission Date: 20141212
  Serious: No
  Sender: FDA-Public Use
  Company Number: US-BAYER-2014-087227

PATIENT
  Age: 83 Year
  Sex: Male
  Weight: 96.15 kg

DRUGS (2)
  1. ALEVE CAPLET [Suspect]
     Indication: BACK PAIN
     Dosage: 2 DF, QD WITH FOOD
     Route: 048
     Dates: start: 20140510
  2. ARICEPT [Concomitant]

REACTIONS (3)
  - Intentional product misuse [None]
  - Incorrect drug administration duration [None]
  - Diarrhoea [Not Recovered/Not Resolved]
